FAERS Safety Report 7946618-0 (Version None)
Quarter: 2011Q4

REPORT INFORMATION
  Report Type: 
  Country: None (occurrence: None)
  Receive Date: 20111129
  Receipt Date: 20111123
  Transmission Date: 20120403
  Serious: Yes (Hospitalization, Other)
  Sender: FDA-Public Use
  Company Number: US-BRISTOL-MYERS SQUIBB COMPANY-16168007

PATIENT
  Age: 64 Year
  Sex: Male
  Weight: 80 kg

DRUGS (1)
  1. ERBITUX [Suspect]
     Indication: HEAD AND NECK CANCER
     Dates: start: 20110810, end: 20110906

REACTIONS (7)
  - RADIATION SKIN INJURY [None]
  - MUCOSAL INFLAMMATION [None]
  - PNEUMONIA STAPHYLOCOCCAL [None]
  - DERMATITIS ACNEIFORM [None]
  - CARDIAC FAILURE [None]
  - ACUTE MYOCARDIAL INFARCTION [None]
  - RESPIRATORY FAILURE [None]
